FAERS Safety Report 8646610 (Version 2)
Quarter: 2016Q1

REPORT INFORMATION
  Report Type: Report from Study
  Country: US (occurrence: US)
  Receive Date: 20120702
  Receipt Date: 20160105
  Transmission Date: 20160526
  Serious: Yes (Other)
  Sender: FDA-Public Use
  Company Number: US-ROCHE-1021913

PATIENT
  Sex: Male
  Weight: 64.11 kg

DRUGS (17)
  1. NEXIUM [Concomitant]
     Active Substance: ESOMEPRAZOLE MAGNESIUM
     Route: 048
  2. OXYCODONE HYDROCHLORIDE. [Concomitant]
     Active Substance: OXYCODONE HYDROCHLORIDE
     Indication: PAIN
     Dosage: TAKE 1/2 TO 1 TAB EVERY 4-6 HR AS NEEDED
     Route: 065
  3. ZELBORAF [Suspect]
     Active Substance: VEMURAFENIB
     Indication: METASTATIC MALIGNANT MELANOMA
     Route: 048
     Dates: start: 201108
  4. VIAGRA [Concomitant]
     Active Substance: SILDENAFIL CITRATE
     Dosage: TAKE ONE AS NEEDED
     Route: 065
  5. NEXIUM [Concomitant]
     Active Substance: ESOMEPRAZOLE MAGNESIUM
     Indication: DYSPEPSIA
     Route: 048
  6. ACETAMINOPHEN/HYDROCODONE [Concomitant]
     Active Substance: ACETAMINOPHEN\HYDROCODONE
     Indication: PAIN
     Dosage: 5-325MG?TAKE 1 OR 2 TABS EVERY 4-6 HRS AS NEEDED
     Route: 065
  7. OXYCONTIN [Concomitant]
     Active Substance: OXYCODONE HYDROCHLORIDE
     Dosage: TAKE ONE EVERY 12 HRS AS NEEDED
     Route: 048
  8. LEVITRA [Concomitant]
     Active Substance: VARDENAFIL HYDROCHLORIDE TRIHYDRATE
     Dosage: TAKE ONE AS NEEDED
     Route: 065
  9. OXYCONTIN [Concomitant]
     Active Substance: OXYCODONE HYDROCHLORIDE
     Indication: PAIN
     Dosage: TAKE ONE EVERY 12 HRS
     Route: 048
  10. LORTAB (UNITED STATES) [Concomitant]
     Dosage: 7.5-500 MG
     Route: 065
  11. LEVITRA [Concomitant]
     Active Substance: VARDENAFIL HYDROCHLORIDE TRIHYDRATE
     Dosage: TAKE ONE AS NEEDED
     Route: 065
  12. CIALIS [Concomitant]
     Active Substance: TADALAFIL
     Dosage: TAKE ONE AS NEEDED
     Route: 065
  13. CREON [Concomitant]
     Active Substance: PANCRELIPASE AMYLASE\PANCRELIPASE LIPASE\PANCRELIPASE PROTEASE
     Dosage: 24000 UNIT CPEP 1-2 BEFORE MEALS
     Route: 065
  14. MARINOL (UNITED STATES) [Concomitant]
     Dosage: TAKE 1 CAPSULE 30-60 MIN PRIOR TO MEALS
     Route: 065
  15. OXYCODONE HYDROCHLORIDE. [Concomitant]
     Active Substance: OXYCODONE HYDROCHLORIDE
     Dosage: TAKE 1 OR 2 TABLETS EVERY 4-6 HR AS NEEDED
     Route: 065
  16. CIALIS [Concomitant]
     Active Substance: TADALAFIL
     Dosage: TAKE ONE AS NEEDED
     Route: 065
  17. VIAGRA [Concomitant]
     Active Substance: SILDENAFIL CITRATE
     Dosage: TAKE ONE AS NEEDED
     Route: 065

REACTIONS (23)
  - Diarrhoea [Unknown]
  - Mass [Recovering/Resolving]
  - Rash [Unknown]
  - Back pain [Unknown]
  - Ear discomfort [Unknown]
  - Hypoacusis [Unknown]
  - Dyspepsia [Unknown]
  - Disease progression [Unknown]
  - Nausea [Unknown]
  - Constipation [Unknown]
  - Fatigue [Unknown]
  - Sunburn [Unknown]
  - Palmar-plantar erythrodysaesthesia syndrome [Recovering/Resolving]
  - Malaise [Unknown]
  - Neoplasm [Unknown]
  - Pain in extremity [Unknown]
  - Pain in extremity [Not Recovered/Not Resolved]
  - Visual acuity reduced [Unknown]
  - Tinnitus [Unknown]
  - Weight decreased [Unknown]
  - Acne [Not Recovered/Not Resolved]
  - Squamous cell carcinoma [Unknown]
  - Asthenia [Unknown]
